FAERS Safety Report 18586461 (Version 1)
Quarter: 2020Q4

REPORT INFORMATION
  Report Type: Spontaneous
  Country: US (occurrence: US)
  Receive Date: 20201204
  Receipt Date: 20201204
  Transmission Date: 20210114
  Serious: No
  Sender: FDA-Public Use
  Company Number: None

PATIENT
  Age: 38 Year
  Sex: Male

DRUGS (1)
  1. HUMIRA [Suspect]
     Active Substance: ADALIMUMAB
     Indication: PSORIASIS
     Route: 058
     Dates: start: 202004

REACTIONS (7)
  - Nausea [None]
  - Chest discomfort [None]
  - Feeling of body temperature change [None]
  - Pain [None]
  - Constipation [None]
  - Dizziness [None]
  - Angina pectoris [None]
